FAERS Safety Report 7454860-0 (Version None)
Quarter: 2011Q2

REPORT INFORMATION
  Report Type: 
  Country: None (occurrence: None)
  Receive Date: 20110503
  Receipt Date: 20110421
  Transmission Date: 20111010
  Serious: Yes (Hospitalization)
  Sender: FDA-Public Use
  Company Number: CL-BRISTOL-MYERS SQUIBB COMPANY-15300890

PATIENT
  Age: 48 Year
  Sex: Female
  Weight: 82 kg

DRUGS (3)
  1. CETUXIMAB [Suspect]
     Indication: GASTROOESOPHAGEAL CANCER
     Dosage: MOST RECENT INF:03SEP2010 RESTARTED ON:24SEP10 NO OF INF:19
     Route: 042
     Dates: start: 20100409
  2. XELODA [Suspect]
     Indication: GASTROOESOPHAGEAL CANCER
     Dosage: ON DAY 1-15:MOST RECENT INF:10SEP2010 RESTARTED ON:24SEP10
     Route: 048
     Dates: start: 20100827
  3. CISPLATIN [Suspect]
     Indication: GASTROOESOPHAGEAL CANCER
     Dosage: ON DAY 1 OF CYCLE:MOST RECENT INF:27AUG2010 RESTARTED ON:24SEP10
     Route: 042
     Dates: start: 20100409

REACTIONS (1)
  - PULMONARY EMBOLISM [None]
